FAERS Safety Report 7413730-4 (Version None)
Quarter: 2011Q2

REPORT INFORMATION
  Report Type: 
  Country: None (occurrence: None)
  Receive Date: 20110413
  Receipt Date: 20110331
  Transmission Date: 20111010
  Serious: Yes (Hospitalization, Disabling, Other)
  Sender: FDA-Public Use
  Company Number: CO-PFIZER INC-CO-WYE-H17773810

PATIENT
  Age: 70 Year
  Sex: Female

DRUGS (10)
  1. GABAPENTIN [Suspect]
     Dosage: 30 MG, 1X/DAY
     Route: 065
  2. PREDNISOLONE [Concomitant]
     Indication: PROPHYLAXIS AGAINST TRANSPLANT REJECTION
     Dosage: 7.5 MG, 1X/DAY
     Route: 065
     Dates: start: 20040101
  3. RAPAMUNE [Suspect]
     Indication: PROPHYLAXIS AGAINST TRANSPLANT REJECTION
     Dosage: 2 MG, 1X/DAY
     Route: 048
     Dates: start: 20040101
  4. NPH INSULIN [Concomitant]
     Dosage: UNK
  5. OMEPRAZOLE [Concomitant]
     Indication: PROPHYLAXIS
     Dosage: 20 MG, 1X/DAY
     Route: 065
     Dates: start: 20040101
  6. MYCOPHENOLATE MOFETIL [Concomitant]
     Indication: PROPHYLAXIS AGAINST TRANSPLANT REJECTION
     Dosage: 540 G, 2X/1 DAY
     Dates: start: 20040101
  7. ATORVASTATIN [Suspect]
     Indication: HYPERCHOLESTEROLAEMIA
     Dosage: 10 MG, 1X/DAY
     Route: 048
     Dates: start: 20070101
  8. INSULIN [Concomitant]
     Dosage: UNKNOWN
     Route: 065
  9. ENALAPRIL [Concomitant]
     Indication: HYPERTENSION
     Dosage: 10 MG, 1X/DAY
     Dates: start: 20040101
  10. INSULIN INJECTION, ISOPHANE [Concomitant]
     Dosage: UNK
     Route: 065

REACTIONS (3)
  - CELLULITIS [None]
  - LIMB INJURY [None]
  - GASTRIC DISORDER [None]
